FAERS Safety Report 5973203-2 (Version None)
Quarter: 2008Q4

REPORT INFORMATION
  Report Type: 
  Country: None (occurrence: None)
  Receive Date: 20081201
  Receipt Date: 20081118
  Transmission Date: 20090506
  Serious: Yes (Other)
  Sender: FDA-Public Use
  Company Number: FR-ELI_LILLY_AND_COMPANY-FR200811004039

PATIENT
  Sex: Male

DRUGS (1)
  1. GEMZAR [Suspect]
     Indication: SARCOMA
     Dosage: 900 MG/M2, UNKNOWN
     Route: 042
     Dates: start: 20081002, end: 20081002

REACTIONS (1)
  - TOXIC SKIN ERUPTION [None]
